FAERS Safety Report 10889800 (Version 4)
Quarter: 2015Q4

REPORT INFORMATION
  Report Type: Spontaneous
  Country: US (occurrence: US)
  Receive Date: 20150305
  Receipt Date: 20151014
  Transmission Date: 20160304
  Serious: Yes (Disabling, Other)
  Sender: FDA-Public Use
  Company Number: US-009507513-1503USA001370

PATIENT
  Sex: Female
  Weight: 62.13 kg

DRUGS (1)
  1. IMPLANON [Suspect]
     Active Substance: ETONOGESTREL
     Indication: CONTRACEPTION
     Dosage: UNK
     Route: 059
     Dates: start: 20120514

REACTIONS (25)
  - Surgery [Not Recovered/Not Resolved]
  - Medical device complication [Unknown]
  - Escherichia infection [Unknown]
  - Cyst [Unknown]
  - Muscle disorder [Unknown]
  - Complication of device removal [Unknown]
  - Amenorrhoea [Unknown]
  - Device difficult to use [Not Recovered/Not Resolved]
  - Device deployment issue [Not Recovered/Not Resolved]
  - Headache [Not Recovered/Not Resolved]
  - Appendicectomy [Unknown]
  - Incision site pain [Unknown]
  - Anxiety [Unknown]
  - Scar [Unknown]
  - Device difficult to use [Not Recovered/Not Resolved]
  - Device dislocation [Not Recovered/Not Resolved]
  - Procedural haemorrhage [Unknown]
  - Complication of device removal [Unknown]
  - Vaginal infection [Unknown]
  - Multiple-drug resistance [Unknown]
  - Nausea [Unknown]
  - Emotional distress [Unknown]
  - Incorrect route of drug administration [Not Recovered/Not Resolved]
  - Device difficult to use [Not Recovered/Not Resolved]
  - Vomiting [Unknown]

NARRATIVE: CASE EVENT DATE: 201205
